FAERS Safety Report 19405021 (Version 1)
Quarter: 2021Q2

REPORT INFORMATION
  Report Type: Spontaneous
  Country: US (occurrence: US)
  Receive Date: 20210611
  Receipt Date: 20210611
  Transmission Date: 20210717
  Serious: Yes (Other)
  Sender: FDA-Public Use
  Company Number: US-PFIZER INC-2021629908

PATIENT
  Age: 54 Year
  Sex: Female

DRUGS (10)
  1. MAGNESIUM [Concomitant]
     Active Substance: MAGNESIUM
     Dosage: 300 MG
  2. PREMARIN [Concomitant]
     Active Substance: ESTROGENS, CONJUGATED
     Dosage: 0.3 MG
  3. HUMIRA [Concomitant]
     Active Substance: ADALIMUMAB
     Dosage: UNK (HUMIRA (CF) PEN)
  4. VITAMIN D [COLECALCIFEROL] [Concomitant]
     Active Substance: CHOLECALCIFEROL
     Dosage: UNK (VITAMIN D?400 10 MCG TABLET)
  5. METHOTREXATE. [Concomitant]
     Active Substance: METHOTREXATE
     Dosage: 2.5 MG
  6. PREDNISONE. [Concomitant]
     Active Substance: PREDNISONE
     Dosage: 1 MG
  7. CELEBREX [Concomitant]
     Active Substance: CELECOXIB
     Dosage: 50 MG
  8. XELJANZ XR [Suspect]
     Active Substance: TOFACITINIB CITRATE
     Indication: RHEUMATOID ARTHRITIS
     Dosage: 11 MG, DAILY
     Route: 048
     Dates: start: 20210201
  9. OSPHENA [Concomitant]
     Active Substance: OSPEMIFENE
     Dosage: 60 MG
  10. SULFASALAZINE. [Concomitant]
     Active Substance: SULFASALAZINE
     Dosage: 500 MG

REACTIONS (1)
  - COVID-19 [Unknown]
